FAERS Safety Report 6802615-X (Version None)
Quarter: 2010Q2

REPORT INFORMATION
  Report Type: 
  Country: None (occurrence: None)
  Receive Date: 20100628
  Receipt Date: 20100617
  Transmission Date: 20101027
  Serious: No
  Sender: FDA-Public Use
  Company Number: US-JNJFOC-20100606127

PATIENT
  Sex: Female
  Weight: 86.18 kg

DRUGS (4)
  1. DURAGESIC-100 [Suspect]
     Indication: SPINAL COLUMN STENOSIS
     Route: 062
  2. VESICARE [Concomitant]
     Indication: POLLAKIURIA
     Route: 048
  3. ZANAFLEX [Concomitant]
     Indication: MUSCLE SPASMS
     Route: 048
  4. UNKNOWN MEDICATION [Concomitant]
     Indication: MUSCLE SPASMS
     Route: 048

REACTIONS (2)
  - DRUG DISPENSING ERROR [None]
  - EXPIRED DRUG ADMINISTERED [None]
